FAERS Safety Report 7415075-5 (Version None)
Quarter: 2011Q2

REPORT INFORMATION
  Report Type: 
  Country: None (occurrence: None)
  Receive Date: 20110414
  Receipt Date: 20110406
  Transmission Date: 20111010
  Serious: Yes (Hospitalization)
  Sender: FDA-Public Use
  Company Number: US-ASTRAZENECA-2011SE19649

PATIENT
  Age: 57 Year
  Sex: Male

DRUGS (5)
  1. ZANTAC [Concomitant]
  2. PEPCID AC [Concomitant]
  3. EQUATE ACID REDUCER [Concomitant]
  4. NEXIUM [Suspect]
     Route: 048
  5. LIPITOR [Concomitant]

REACTIONS (5)
  - DRUG WITHDRAWAL SYNDROME [None]
  - MALAISE [None]
  - DRUG DOSE OMISSION [None]
  - THROMBOSIS [None]
  - GASTROOESOPHAGEAL REFLUX DISEASE [None]
